FAERS Safety Report 5632064-1 (Version None)
Quarter: 2008Q1

REPORT INFORMATION
  Report Type: 
  Country: None (occurrence: None)
  Receive Date: 20080220
  Receipt Date: 20080215
  Transmission Date: 20080703
  Serious: Yes (Other)
  Sender: FDA-Public Use
  Company Number: A0703875A

PATIENT
  Age: 37 Year
  Sex: Female

DRUGS (6)
  1. IMITREX [Suspect]
     Indication: MIGRAINE
     Dosage: 50MG AS REQUIRED
     Route: 048
  2. VICODIN [Concomitant]
  3. REMERON [Concomitant]
  4. DARVOCET [Concomitant]
  5. LYRICA [Concomitant]
  6. EFFEXOR [Concomitant]

REACTIONS (5)
  - DRY EYE [None]
  - EYELID FUNCTION DISORDER [None]
  - FACIAL PALSY [None]
  - PAIN [None]
  - PARALYSIS [None]
